FAERS Safety Report 9697264 (Version 3)
Quarter: 2013Q4

REPORT INFORMATION
  Report Type: Spontaneous
  Country: ES (occurrence: ES)
  Receive Date: 20131120
  Receipt Date: 20131122
  Transmission Date: 20140711
  Serious: Yes (Other)
  Sender: FDA-Public Use
  Company Number: ES-009507513-1303ESP006356

PATIENT
  Age: 28 Year
  Sex: Female

DRUGS (1)
  1. NUVARING [Suspect]
     Dosage: ETONOGESTREL 0.120 MILLIGRAM (+) ETHINYL ESTRADIOL 0.015 MILLIGRAM
     Route: 067
     Dates: start: 2010

REACTIONS (5)
  - Caesarean section [Recovered/Resolved]
  - Unintended pregnancy [Recovered/Resolved]
  - Incorrect drug administration duration [Unknown]
  - Pre-eclampsia [Recovered/Resolved]
  - Weight increased [Unknown]
